FAERS Safety Report 16856273 (Version 2)
Quarter: 2019Q4

REPORT INFORMATION
  Report Type: Spontaneous
  Country: US (occurrence: US)
  Receive Date: 20190926
  Receipt Date: 20191108
  Transmission Date: 20200122
  Serious: No
  Sender: FDA-Public Use
  Company Number: US-PFIZER INC-2019414547

PATIENT
  Age: 81 Year
  Sex: Female
  Weight: 51.7 kg

DRUGS (1)
  1. IBRANCE [Suspect]
     Active Substance: PALBOCICLIB
     Indication: BREAST CANCER FEMALE
     Dosage: 125 MG, CYCLIC (125 MG CAP ONCE DAILY- 21 DAILY FOR 21 DAYS OFF 7 DAYS THEN REPEAT)
     Dates: start: 20190925

REACTIONS (1)
  - Eating disorder [Not Recovered/Not Resolved]

NARRATIVE: CASE EVENT DATE: 20190928
